FAERS Safety Report 8416699-9 (Version None)
Quarter: 2012Q2

REPORT INFORMATION
  Report Type: 
  Country: None (occurrence: None)
  Receive Date: 20120530
  Receipt Date: 20120517
  Transmission Date: 20120825
  Serious: Yes (Other)
  Sender: FDA-Public Use
  Company Number: B0803656A

PATIENT
  Sex: Male

DRUGS (3)
  1. DEXAMETHASONE [Suspect]
  2. METHYLPREDNISOLONE [Suspect]
  3. FLUTICASONE PROPIONATE [Suspect]
     Dosage: INHALED
     Route: 055

REACTIONS (1)
  - DRUG HYPERSENSITIVITY [None]
